FAERS Safety Report 8156103-1 (Version None)
Quarter: 2012Q1

REPORT INFORMATION
  Report Type: 
  Country: None (occurrence: None)
  Receive Date: 20120221
  Receipt Date: 20120221
  Transmission Date: 20120608
  Serious: Yes (Hospitalization)
  Sender: FDA-Public Use
  Company Number: None

PATIENT
  Sex: Female
  Weight: 75.2971 kg

DRUGS (2)
  1. LOSARTAN POTASSIUM [Suspect]
     Indication: HYPERTENSION
     Dosage: 50MG BID ORALLY
     Route: 048
     Dates: start: 20120125, end: 20120202
  2. LOSARTAN POTASSIUM [Suspect]
     Indication: TACHYCARDIA
     Dosage: 100 MG ONCE DAILY ORALLY
     Route: 048

REACTIONS (6)
  - CHEST DISCOMFORT [None]
  - PRODUCT SUBSTITUTION ISSUE [None]
  - CHEST PAIN [None]
  - HYPERSENSITIVITY [None]
  - HEADACHE [None]
  - DYSPNOEA [None]
